FAERS Safety Report 7086906-6 (Version None)
Quarter: 2010Q4

REPORT INFORMATION
  Report Type: 
  Country: None (occurrence: None)
  Receive Date: 20101106
  Receipt Date: 20101102
  Transmission Date: 20110411
  Serious: No
  Sender: FDA-Public Use
  Company Number: US-WYE-H16359410

PATIENT
  Sex: Female

DRUGS (4)
  1. PROTONIX [Suspect]
     Dosage: UNKNOWN
  2. SUTENT [Suspect]
     Dosage: 50 MG DAILY, CYCLE 4 WEEKS ON 2 OFF
     Dates: start: 20100709, end: 20100730
  3. SUTENT [Suspect]
     Dosage: 37.5 MG DAILY FOR 28 DAYS EVERY 42 DAYS
     Dates: start: 20100813, end: 20100101
  4. SUTENT [Suspect]
     Dosage: RESTARTED AT 37.5 MG DAILY X 14 DAYS EVERY 21 DAYS
     Dates: start: 20100101, end: 20100101

REACTIONS (13)
  - COUGH [None]
  - DIARRHOEA [None]
  - DYSGEUSIA [None]
  - DYSPEPSIA [None]
  - ERUCTATION [None]
  - FATIGUE [None]
  - GASTROOESOPHAGEAL REFLUX DISEASE [None]
  - GINGIVAL PAIN [None]
  - NAUSEA [None]
  - ORAL PAIN [None]
  - OROPHARYNGEAL PAIN [None]
  - PAIN IN JAW [None]
  - VOMITING [None]
